FAERS Safety Report 7682308 (Version 21)
Quarter: 2014Q2

REPORT INFORMATION
  Report Type: Report from Study
  Country: CA (occurrence: CA)
  Receive Date: 20101124
  Receipt Date: 20140528
  Transmission Date: 20141212
  Serious: Yes (Death, Hospitalization, Other)
  Sender: FDA-Public Use
  Company Number: PHHY2010CA49337

PATIENT
  Age: 63 Year
  Sex: Female

DRUGS (8)
  1. SANDOSTATIN LAR [Suspect]
     Indication: CARCINOID TUMOUR
     Dosage: 30 MG, EVERY THREE WEEKS
     Route: 030
     Dates: start: 20021020
  2. SANDOSTATIN LAR [Suspect]
     Dosage: 40 MG, EVERY 3 WEEKS
     Route: 030
     Dates: end: 20140501
  3. SANDOSTATIN (OCTREOTIDE ACETATE) [Suspect]
     Dosage: UNK UKN, TID
     Route: 058
  4. SANDOSTATIN (OCTREOTIDE ACETATE) [Suspect]
     Dosage: UNK UKN, DAILY
  5. AFINITOR [Concomitant]
     Indication: CARCINOID TUMOUR
     Dosage: 10 MG, QD
     Route: 048
     Dates: start: 20140420
  6. AFINITOR [Concomitant]
     Dosage: 10 MG, QD
     Route: 048
     Dates: start: 20140424
  7. AFINITOR [Concomitant]
     Dosage: 5 MG, QD
     Route: 048
  8. ANTIBIOTICS [Concomitant]
     Dosage: UNK UKN, UNK

REACTIONS (23)
  - Death [Fatal]
  - Mental disorder [Unknown]
  - Thinking abnormal [Unknown]
  - Functional gastrointestinal disorder [Not Recovered/Not Resolved]
  - Obstruction gastric [Unknown]
  - Vomiting [Unknown]
  - Abdominal discomfort [Unknown]
  - Gastric dilatation [Unknown]
  - Intestinal obstruction [Unknown]
  - Calculus ureteric [Unknown]
  - Dysphagia [Unknown]
  - Dysuria [Unknown]
  - Urinary incontinence [Unknown]
  - Blood pressure systolic increased [Unknown]
  - Diarrhoea [Unknown]
  - Malignant neoplasm progression [Unknown]
  - Pain [Unknown]
  - Contusion [Unknown]
  - Blood urine present [Recovered/Resolved]
  - Malaise [Unknown]
  - Weight decreased [Unknown]
  - Abdominal pain [Unknown]
  - Wrong technique in drug usage process [Unknown]
